FAERS Safety Report 5027911-0 (Version None)
Quarter: 2006Q2

REPORT INFORMATION
  Report Type: 
  Country: None (occurrence: None)
  Receive Date: 20060612
  Receipt Date: 20060601
  Transmission Date: 20061013
  Serious: Yes (Death, Hospitalization)
  Sender: FDA-Public Use
  Company Number: 2006JP001245

PATIENT
  Age: 59 Year
  Sex: Female
  Weight: 53 kg

DRUGS (6)
  1. ADVAFERON [Suspect]
     Indication: HEPATITIS C VIRUS
     Dosage: 18 MIU, UID/QD, SUBCUTANEOUS
     Route: 058
     Dates: start: 20040122, end: 20040619
  2. FUNGUARD (MICAFUNGIN) [Suspect]
     Indication: INTERSTITIAL LUNG DISEASE
     Dosage: 150 MG, UNKNOWN/D, IV NOS
     Route: 042
     Dates: start: 20060504
  3. PEGASYS [Suspect]
     Dosage: UNK, IV NOS
     Route: 042
     Dates: start: 20051101, end: 20060420
  4. STEROID ANTIBACTERIALS [Concomitant]
  5. INSULIN (INSULIN HUMAN) [Concomitant]
  6. FASTIC (NATEGLINIDE) [Concomitant]

REACTIONS (5)
  - DISEASE RECURRENCE [None]
  - ENTEROCOCCAL INFECTION [None]
  - GENERAL PHYSICAL HEALTH DETERIORATION [None]
  - INTERSTITIAL LUNG DISEASE [None]
  - STAPHYLOCOCCAL INFECTION [None]
